FAERS Safety Report 19154430 (Version 1)
Quarter: 2021Q2

REPORT INFORMATION
  Report Type: Other
  Country: US (occurrence: US)
  Receive Date: 20210419
  Receipt Date: 20210419
  Transmission Date: 20210717
  Serious: Yes (Other)
  Sender: FDA-Public Use
  Company Number: US-ROCHE-2807648

PATIENT
  Age: 39 Year
  Sex: Female
  Weight: 81.72 kg

DRUGS (7)
  1. OCREVUS [Suspect]
     Active Substance: OCRELIZUMAB
     Indication: MULTIPLE SCLEROSIS
     Dosage: FIRST 2 HALF DOSES GIVEN OVER 2 WEEKS
     Route: 042
     Dates: start: 20200915, end: 20200929
  2. OCREVUS [Suspect]
     Active Substance: OCRELIZUMAB
     Route: 042
     Dates: start: 20210329
  3. TYLENOL [Concomitant]
     Active Substance: ACETAMINOPHEN
     Dates: start: 20200915
  4. BENADRYL [Concomitant]
     Active Substance: DIPHENHYDRAMINE HYDROCHLORIDE
     Dates: start: 20200915
  5. LYRICA [Concomitant]
     Active Substance: PREGABALIN
     Indication: TREMOR
     Route: 048
  6. VITAMIN C [Concomitant]
     Active Substance: ASCORBIC ACID
     Route: 048
  7. METHYLPREDNISOLONE. [Concomitant]
     Active Substance: METHYLPREDNISOLONE
     Dates: start: 20200915

REACTIONS (5)
  - Urinary tract infection [Recovered/Resolved]
  - Therapeutic response shortened [Unknown]
  - Fatigue [Not Recovered/Not Resolved]
  - Alopecia [Not Recovered/Not Resolved]
  - Asthenia [Not Recovered/Not Resolved]

NARRATIVE: CASE EVENT DATE: 202010
